FAERS Safety Report 6838948-0 (Version None)
Quarter: 2010Q3

REPORT INFORMATION
  Report Type: 
  Country: None (occurrence: None)
  Receive Date: 20100713
  Receipt Date: 20071207
  Transmission Date: 20110219
  Serious: Yes (Other)
  Sender: FDA-Public Use
  Company Number: US-PFIZER INC-2007042592

PATIENT
  Sex: Female
  Weight: 54.4 kg

DRUGS (8)
  1. CHANTIX [Suspect]
     Indication: NICOTINE DEPENDENCE
     Route: 048
     Dates: start: 20070405, end: 20070414
  2. CHANTIX [Suspect]
     Indication: TOBACCO USER
  3. INSULIN [Concomitant]
  4. LANTUS [Concomitant]
  5. HUMALOG [Concomitant]
  6. SIMVASTATIN [Concomitant]
  7. LISINOPRIL [Concomitant]
  8. LIPITOR [Concomitant]

REACTIONS (1)
  - HYPOGLYCAEMIA [None]
